FAERS Safety Report 21210162 (Version 2)
Quarter: 2022Q3

REPORT INFORMATION
  Report Type: Spontaneous
  Country: US (occurrence: None)
  Receive Date: 20220814
  Receipt Date: 20220817
  Transmission Date: 20221027
  Serious: Yes (Other)
  Sender: FDA-Public Use
  Company Number: US-ROCHE-3154806

PATIENT
  Age: 62 Year
  Sex: Female
  Weight: 45.400 kg

DRUGS (3)
  1. ALECENSA [Suspect]
     Active Substance: ALECTINIB HYDROCHLORIDE
     Indication: Lung carcinoma cell type unspecified stage IV
     Dosage: TAKES FOUR TABS PER DOSE
     Route: 048
     Dates: start: 202206
  2. KEPPRA [Concomitant]
     Active Substance: LEVETIRACETAM
     Indication: Seizure
     Route: 048
     Dates: start: 20220624
  3. ELIQUIS [Concomitant]
     Active Substance: APIXABAN
     Indication: Anticoagulant therapy
     Route: 048

REACTIONS (10)
  - Ischaemic stroke [Not Recovered/Not Resolved]
  - Blindness [Not Recovered/Not Resolved]
  - Stroke in evolution [Unknown]
  - Seizure [Unknown]
  - Blood urine present [Recovered/Resolved]
  - Asthenia [Recovered/Resolved]
  - Dysphagia [Recovering/Resolving]
  - Aphasia [Unknown]
  - Off label use [Unknown]
  - Underdose [Not Recovered/Not Resolved]

NARRATIVE: CASE EVENT DATE: 20220624
